FAERS Safety Report 14988847 (Version 2)
Quarter: 2018Q4

REPORT INFORMATION
  Report Type: Spontaneous
  Country: US (occurrence: US)
  Receive Date: 20180608
  Receipt Date: 20181121
  Transmission Date: 20190204
  Serious: No
  Sender: FDA-Public Use
  Company Number: US-PFIZER INC-2018121349

PATIENT
  Age: 74 Year
  Sex: Female
  Weight: 169.4 kg

DRUGS (4)
  1. DOCETAXEL. [Suspect]
     Active Substance: DOCETAXEL
     Indication: BREAST CANCER
     Dosage: 128 MG, EVERY 3 WEEKS
     Dates: start: 20131219, end: 20140220
  2. TAXOTERE [Suspect]
     Active Substance: DOCETAXEL
  3. NEOSAR [Concomitant]
     Active Substance: CYCLOPHOSPHAMIDE
  4. CYTOXAN [Concomitant]
     Active Substance: CYCLOPHOSPHAMIDE

REACTIONS (7)
  - Hair disorder [Unknown]
  - Hair texture abnormal [Unknown]
  - Emotional distress [Unknown]
  - Hair colour changes [Unknown]
  - Depression [Unknown]
  - Anxiety [Unknown]
  - Alopecia [Unknown]
